FAERS Safety Report 10149017 (Version 2)
Quarter: 2014Q2

REPORT INFORMATION
  Report Type: Spontaneous
  Country: BR (occurrence: BR)
  Receive Date: 20140502
  Receipt Date: 20140523
  Transmission Date: 20141212
  Serious: Yes (Other)
  Sender: FDA-Public Use
  Company Number: BR-ROCHE-1393395

PATIENT
  Age: 37 Year
  Sex: Female

DRUGS (2)
  1. ZELBORAF [Suspect]
     Indication: METASTATIC MALIGNANT MELANOMA
     Route: 048
     Dates: start: 20140314, end: 20140511
  2. NPH (INSULIN) [Concomitant]
     Indication: DIABETES MELLITUS

REACTIONS (5)
  - Drug reaction with eosinophilia and systemic symptoms [Unknown]
  - Lip ulceration [Unknown]
  - Pyrexia [Recovered/Resolved]
  - Arthralgia [Recovered/Resolved]
  - Transaminases increased [Recovered/Resolved]
